FAERS Safety Report 7955958-0 (Version None)
Quarter: 2011Q4

REPORT INFORMATION
  Report Type: 
  Country: None (occurrence: None)
  Receive Date: 20111205
  Receipt Date: 20111128
  Transmission Date: 20120403
  Serious: No
  Sender: FDA-Public Use
  Company Number: US-BIOGENIDEC-2011BI045468

PATIENT
  Age: 41 Year
  Sex: Female

DRUGS (4)
  1. AMPYRA [Concomitant]
     Indication: GAIT DISTURBANCE
     Dates: start: 20080101, end: 20110901
  2. OSTEO BIOFLEX [Concomitant]
     Indication: GAIT DISTURBANCE
     Dates: start: 20110901
  3. TYSABRI [Suspect]
     Indication: MULTIPLE SCLEROSIS
     Route: 042
     Dates: start: 20070301, end: 20110901
  4. NAPROXEN (ALEVE) [Concomitant]
     Indication: GAIT DISTURBANCE
     Dates: start: 20110901

REACTIONS (1)
  - FALL [None]
